FAERS Safety Report 10334859 (Version 1)
Quarter: 2014Q3

REPORT INFORMATION
  Report Type: Spontaneous
  Country: US (occurrence: None)
  Receive Date: 20140721
  Receipt Date: 20140721
  Transmission Date: 20150326
  Serious: Yes (Other)
  Sender: FDA-Public Use
  Company Number: 20140405

PATIENT
  Age: 35 Year
  Sex: Male

DRUGS (3)
  1. VENOFER [Suspect]
     Active Substance: IRON SUCROSE
     Dosage: 100 MG IV PUSH
     Route: 042
     Dates: start: 20140623, end: 20140625
  2. VENOFER [Suspect]
     Active Substance: IRON SUCROSE
     Indication: NEPHROGENIC ANAEMIA
     Dosage: 100 MG IV PUSH
     Route: 042
     Dates: start: 20140623, end: 20140625
  3. EPO [Concomitant]
     Active Substance: ERYTHROPOIETIN

REACTIONS (6)
  - Nausea [None]
  - Pain in jaw [None]
  - Hypertension [None]
  - Vomiting [None]
  - Drug hypersensitivity [None]
  - Headache [None]

NARRATIVE: CASE EVENT DATE: 20140623
